FAERS Safety Report 14678736 (Version 2)
Quarter: 2018Q3

REPORT INFORMATION
  Report Type: Spontaneous
  Country: SE (occurrence: SE)
  Receive Date: 20180326
  Receipt Date: 20180822
  Transmission Date: 20181010
  Serious: Yes (Other)
  Sender: FDA-Public Use
  Company Number: SE-AUROBINDO-AUR-APL-2018-016434

PATIENT
  Age: 52 Year
  Sex: Female

DRUGS (8)
  1. ENALAPRIL [Suspect]
     Active Substance: ENALAPRIL
     Indication: HYPERTENSION
     Dosage: 50 MILLIGRAM, ONCE A DAY
     Route: 048
  2. CIPROFLOXACIN. [Interacting]
     Active Substance: CIPROFLOXACIN
     Indication: BRONCHITIS
     Dosage: 1000 MILLIGRAM
     Route: 048
  3. METFORMIN [Suspect]
     Active Substance: METFORMIN HYDROCHLORIDE
     Indication: TYPE 2 DIABETES MELLITUS
     Dosage: 1700 MILLIGRAM, ONCE A DAY
     Route: 048
  4. CLONAZEPAM. [Concomitant]
     Active Substance: CLONAZEPAM
     Indication: PRODUCT USED FOR UNKNOWN INDICATION
     Dosage: UNK
  5. CIPROFLOXACIN. [Interacting]
     Active Substance: CIPROFLOXACIN
     Dosage: 1.0 G, UNK
     Route: 048
  6. ENALAPRIL [Suspect]
     Active Substance: ENALAPRIL
     Dosage: 20 MG, UNK
     Route: 048
  7. ENALAPRIL [Suspect]
     Active Substance: ENALAPRIL
     Dosage: (LONG TERM)
     Route: 048
  8. CIPROFLOXACIN. [Interacting]
     Active Substance: CIPROFLOXACIN
     Indication: URINARY TRACT INFECTION
     Dosage: 50 MG, UNK
     Route: 048

REACTIONS (2)
  - Drug interaction [Recovering/Resolving]
  - Acute kidney injury [Recovering/Resolving]
